FAERS Safety Report 17952348 (Version 2)
Quarter: 2020Q3

REPORT INFORMATION
  Report Type: Spontaneous
  Country: US (occurrence: US)
  Receive Date: 20200626
  Receipt Date: 20200707
  Transmission Date: 20201103
  Serious: Yes (Other)
  Sender: FDA-Public Use
  Company Number: US-ACELLA PHARMACEUTICALS, LLC-2086724

PATIENT
  Age: 66 Year
  Sex: Female
  Weight: 78.18 kg

DRUGS (2)
  1. NP THYROID [Suspect]
     Active Substance: LEVOTHYROXINE\LIOTHYRONINE
     Route: 048
     Dates: start: 202003, end: 202005
  2. NP THYROID [Suspect]
     Active Substance: LEVOTHYROXINE\LIOTHYRONINE
     Indication: HYPOTHYROIDISM
     Route: 048
     Dates: start: 202003, end: 202005

REACTIONS (11)
  - Heart rate increased [Unknown]
  - Cardiac failure [Not Recovered/Not Resolved]
  - Blood pressure diastolic abnormal [Unknown]
  - Atrial fibrillation [Recovered/Resolved]
  - Malaise [Unknown]
  - Dyspnoea [Recovered/Resolved]
  - Tri-iodothyronine increased [Unknown]
  - Arrhythmia [Recovered/Resolved]
  - Impaired quality of life [Unknown]
  - Heart rate decreased [Not Recovered/Not Resolved]
  - Fluid retention [Recovered/Resolved]

NARRATIVE: CASE EVENT DATE: 202004
